FAERS Safety Report 15644552 (Version 1)
Quarter: 2018Q4

REPORT INFORMATION
  Report Type: Spontaneous
  Country: US (occurrence: US)
  Receive Date: 20181121
  Receipt Date: 20181121
  Transmission Date: 20190205
  Serious: Yes (Death)
  Sender: FDA-Public Use
  Company Number: None

PATIENT
  Age: 35 Year
  Sex: Male

DRUGS (11)
  1. BOTOX [Suspect]
     Active Substance: ONABOTULINUMTOXINA
     Indication: MIGRAINE
     Dosage: ?          OTHER FREQUENCY:EVERY 3 MONTHS;?
     Route: 030
     Dates: start: 20180713, end: 20181005
  2. ZOLPIDEM [Concomitant]
     Active Substance: ZOLPIDEM\ZOLPIDEM TARTRATE
  3. NAPROXEN. [Concomitant]
     Active Substance: NAPROXEN
  4. NARATRIPTAN [Concomitant]
     Active Substance: NARATRIPTAN HYDROCHLORIDE
  5. LAMOTRIGINE. [Concomitant]
     Active Substance: LAMOTRIGINE
  6. BACLOFEN. [Concomitant]
     Active Substance: BACLOFEN
  7. SERTRALINE [Concomitant]
     Active Substance: SERTRALINE HYDROCHLORIDE
  8. ATROVASTATIN [Concomitant]
     Active Substance: ATORVASTATIN CALCIUM
  9. ORPHENADRINE [Concomitant]
     Active Substance: ORPHENADRINE
  10. LYRICA [Concomitant]
     Active Substance: PREGABALIN
  11. ZOLMITRIPTAN. [Concomitant]
     Active Substance: ZOLMITRIPTAN

REACTIONS (1)
  - Death [None]

NARRATIVE: CASE EVENT DATE: 20181120
